FAERS Safety Report 7412515-2 (Version None)
Quarter: 2011Q2

REPORT INFORMATION
  Report Type: 
  Country: None (occurrence: None)
  Receive Date: 20110408
  Receipt Date: 20110408
  Transmission Date: 20111010
  Serious: No
  Sender: FDA-Public Use
  Company Number: None

PATIENT
  Sex: Female

DRUGS (1)
  1. TARCEVA [Suspect]
     Dosage: 100MG ONCE DAILY ORAL
     Route: 048
     Dates: start: 20110214

REACTIONS (3)
  - ULCERATIVE KERATITIS [None]
  - CULTURE POSITIVE [None]
  - BACTERIAL INFECTION [None]
